FAERS Safety Report 7175757-X (Version None)
Quarter: 2010Q4

REPORT INFORMATION
  Report Type: 
  Country: None (occurrence: None)
  Receive Date: 20101220
  Receipt Date: 20100401
  Transmission Date: 20110411
  Serious: No
  Sender: FDA-Public Use
  Company Number: US-AMGEN-QUU403244

PATIENT

DRUGS (6)
  1. ENBREL [Suspect]
     Indication: RHEUMATOID ARTHRITIS
     Dosage: 50 MG, QWK
     Dates: start: 20060101
  2. CELECOXIB [Concomitant]
     Dosage: UNK UNK, UNK
  3. PREDNISONE [Concomitant]
     Dosage: UNK UNK, UNK
  4. ALENDRONATE SODIUM [Concomitant]
     Dosage: UNK UNK, UNK
  5. ESOMEPRAZOLE MAGNESIUM [Concomitant]
     Dosage: UNK UNK, UNK
  6. SULFASALAZINE [Concomitant]
     Dosage: UNK UNK, UNK

REACTIONS (1)
  - LYME DISEASE [None]
